FAERS Safety Report 7991833-3 (Version None)
Quarter: 2011Q4

REPORT INFORMATION
  Report Type: 
  Country: None (occurrence: None)
  Receive Date: 20111219
  Receipt Date: 20111215
  Transmission Date: 20120403
  Serious: No
  Sender: FDA-Public Use
  Company Number: US-PFIZER INC-2011305900

PATIENT
  Age: 54 Year
  Sex: Female

DRUGS (3)
  1. LYRICA [Suspect]
     Indication: CONVULSION
     Dosage: 150 MG, UNK
     Route: 048
  2. VIMPAT [Suspect]
     Dosage: UNK
  3. KEPPRA [Suspect]
     Dosage: UNK

REACTIONS (2)
  - HEADACHE [None]
  - CONSTIPATION [None]
